FAERS Safety Report 8845382 (Version 1)
Quarter: 2012Q4

REPORT INFORMATION
  Report Type: 
  Country: US (occurrence: US)
  Receive Date: 20121017
  Receipt Date: 20121017
  Transmission Date: 20130627
  Serious: No
  Sender: FDA-Public Use
  Company Number: US-009507513-1210USA005776

PATIENT
  Sex: Female

DRUGS (9)
  1. PRINIVIL [Suspect]
     Route: 048
  2. ZOSTAVAX [Concomitant]
     Indication: PROPHYLAXIS
     Dates: start: 20100722, end: 20100722
  3. ATENOLOL [Concomitant]
  4. HYDROCHLOROTHIAZIDE (+) TRIAMTERENE [Concomitant]
  5. AMLODIPINE [Concomitant]
  6. LOSARTAN POTASSIUM [Concomitant]
  7. ASPIRIN [Concomitant]
  8. VITAMIN B6 [Concomitant]
  9. VITAMIN D3 [Concomitant]

REACTIONS (1)
  - Drug hypersensitivity [Unknown]
